FAERS Safety Report 11504018 (Version 2)
Quarter: 2015Q3

REPORT INFORMATION
  Report Type: Report from Study
  Country: DE (occurrence: DE)
  Receive Date: 20150914
  Receipt Date: 20150924
  Transmission Date: 20151125
  Serious: Yes (Hospitalization, Other)
  Sender: FDA-Public Use
  Company Number: DE-GILEAD-2015-0170602

PATIENT
  Age: 62 Year
  Sex: Male
  Weight: 105 kg

DRUGS (15)
  1. SOFOSBUVIR [Suspect]
     Active Substance: SOFOSBUVIR
     Indication: CHRONIC HEPATITIS C
     Dosage: 400 MG, QD
     Route: 048
     Dates: start: 20141118
  2. BISOPROLOL [Concomitant]
     Active Substance: BISOPROLOL
     Dosage: 5 MG, UNK
     Route: 065
  3. ASPIRIN. [Concomitant]
     Active Substance: ASPIRIN
     Dosage: 100 MG, UNK
     Route: 065
     Dates: start: 20141109
  4. ALLOPURINOL. [Concomitant]
     Active Substance: ALLOPURINOL
     Dosage: 100 MG, UNK
     Route: 065
     Dates: start: 20141109
  5. ENALAPRIL [Concomitant]
     Active Substance: ENALAPRIL
     Dosage: 10 MG, UNK
     Route: 065
     Dates: start: 20141109
  6. HCT [Concomitant]
     Active Substance: HYDROCHLOROTHIAZIDE
     Dosage: 25 MG, UNK
     Route: 065
     Dates: start: 20141109
  7. L-THYROXIN [Concomitant]
     Active Substance: LEVOTHYROXINE SODIUM
     Dosage: 50 MG, UNK
     Route: 065
     Dates: start: 20141109
  8. METFORMIN [Concomitant]
     Active Substance: METFORMIN HYDROCHLORIDE
     Dosage: 1000 MG, UNK
     Route: 065
     Dates: start: 20141109, end: 20150226
  9. SPIRONOLACTON [Concomitant]
     Active Substance: SPIRONOLACTONE
     Dosage: 100 MG, UNK
  10. PANTOZOL [Concomitant]
     Active Substance: PANTOPRAZOLE SODIUM
     Indication: PROPHYLAXIS
     Dosage: 40 MG, UNK
     Route: 065
     Dates: start: 20141109
  11. TORASEMID [Concomitant]
     Active Substance: TORSEMIDE
     Dosage: 10 MG, UNK
     Route: 065
     Dates: start: 20141109
  12. MOLSIDOMIN [Concomitant]
     Dosage: 8 MG, UNK
     Route: 065
     Dates: start: 20141109
  13. DACLATASVIR DIHYDROCHLORIDE [Suspect]
     Active Substance: DACLATASVIR DIHYDROCHLORIDE
     Indication: CHRONIC HEPATITIS C
     Dosage: 60 MG, QD
     Route: 048
     Dates: start: 20141118
  14. SPIRONOLACTON [Concomitant]
     Active Substance: SPIRONOLACTONE
     Dosage: 50 MG, UNK
  15. SPIRONOLACTON [Concomitant]
     Active Substance: SPIRONOLACTONE
     Dosage: 25 MG, UNK
     Route: 065
     Dates: start: 20141109

REACTIONS (6)
  - Hepatic encephalopathy [Recovered/Resolved]
  - Gastrointestinal haemorrhage [Recovered/Resolved]
  - Pyrexia [Recovered/Resolved]
  - Acute kidney injury [Recovered/Resolved]
  - Hepatic encephalopathy [Recovered/Resolved]
  - Haematemesis [Recovered/Resolved]

NARRATIVE: CASE EVENT DATE: 20141127
